FAERS Safety Report 14198549 (Version 1)
Quarter: 2017Q4

REPORT INFORMATION
  Report Type: Spontaneous
  Country: US (occurrence: US)
  Receive Date: 20171116
  Receipt Date: 20171116
  Transmission Date: 20180321
  Serious: Yes (Hospitalization, Disabling, Other)
  Sender: FDA-Public Use
  Company Number: None

PATIENT
  Age: 28 Year
  Sex: Male
  Weight: 63 kg

DRUGS (9)
  1. CIPRO [Suspect]
     Active Substance: CIPROFLOXACIN HYDROCHLORIDE
     Indication: PROSTATITIS
  2. KEFLEX [Suspect]
     Active Substance: CEPHALEXIN
  3. DOXYCYCLINE. [Suspect]
     Active Substance: DOXYCYCLINE
  4. BACTRIM [Suspect]
     Active Substance: SULFAMETHOXAZOLE\TRIMETHOPRIM
  5. LEVAQUIN [Suspect]
     Active Substance: LEVOFLOXACIN
  6. DIGESTIVE ENZYMES [Concomitant]
     Active Substance: UNSPECIFIED INGREDIENT
  7. FUNGAL DEFENSE [Concomitant]
  8. CAPRYLIC ACID [Concomitant]
  9. GYMNEMA SYLVESTRE [Concomitant]
     Active Substance: HERBALS

REACTIONS (4)
  - Asthenia [None]
  - Gastrointestinal candidiasis [None]
  - Faeces pale [None]
  - Disturbance in attention [None]

NARRATIVE: CASE EVENT DATE: 20150123
